FAERS Safety Report 12976277 (Version 4)
Quarter: 2016Q4

REPORT INFORMATION
  Report Type: Spontaneous
  Country: FR (occurrence: FR)
  Receive Date: 20161126
  Receipt Date: 20161228
  Transmission Date: 20170207
  Serious: Yes (Death, Other)
  Sender: FDA-Public Use
  Company Number: FR-BAXTER-2016BAX059089

PATIENT
  Age: 60 Year
  Sex: Male

DRUGS (31)
  1. CYTARABINE. [Suspect]
     Active Substance: CYTARABINE
     Indication: HIGH GRADE B-CELL LYMPHOMA BURKITT-LIKE LYMPHOMA RECURRENT
     Dosage: FOUR COURSES OF SALVAGE CHEMOTHERAPY WITH R-DHAC PROTOCOL
     Route: 065
     Dates: end: 201610
  2. HYDROXYL-DOXORUBICINE [Suspect]
     Active Substance: DOXORUBICIN
     Indication: HIGH GRADE B-CELL LYMPHOMA BURKITT-LIKE LYMPHOMA RECURRENT
     Dosage: SIX COURSES OF CHEMOTHERAPY
     Route: 065
  3. HYDROXYL-DOXORUBICINE [Suspect]
     Active Substance: DOXORUBICIN
     Dosage: SIX COURSES OF CHEMOTHERAPY
     Route: 065
     Dates: start: 201512
  4. MESNA EG [Suspect]
     Active Substance: MESNA
     Indication: PRODUCT USED FOR UNKNOWN INDICATION
     Route: 065
     Dates: start: 20161101, end: 20161104
  5. GAVISCON [Concomitant]
     Active Substance: ALUMINUM HYDROXIDE\MAGNESIUM CARBONATE
     Indication: ABDOMINAL PAIN UPPER
     Route: 065
  6. HEPARIN [Concomitant]
     Active Substance: HEPARIN SODIUM
     Indication: DEVICE OCCLUSION
     Dosage: THERAPY FOR 2 WEEKS
     Route: 065
     Dates: start: 201609
  7. RITUXIMAB [Suspect]
     Active Substance: RITUXIMAB
     Indication: HIGH GRADE B-CELL LYMPHOMA BURKITT-LIKE LYMPHOMA RECURRENT
     Dosage: SIX COURSES OF CHEMOTHERAPY
     Route: 065
  8. RITUXIMAB [Suspect]
     Active Substance: RITUXIMAB
     Dosage: 2 COURSES
     Route: 065
  9. RITUXIMAB [Suspect]
     Active Substance: RITUXIMAB
     Dosage: FOUR COURSES OF SALVAGE CHEMOTHERAPY WITH R-DHAC PROTOCOL
     Route: 065
     Dates: end: 201610
  10. TAZOCILLINE [Suspect]
     Active Substance: PIPERACILLIN SODIUM\TAZOBACTAM SODIUM
     Indication: PRODUCT USED FOR UNKNOWN INDICATION
     Route: 042
     Dates: start: 20161104, end: 20161104
  11. CARBOPLATINE [Suspect]
     Active Substance: CARBOPLATIN
     Indication: HIGH GRADE B-CELL LYMPHOMA BURKITT-LIKE LYMPHOMA RECURRENT
     Dosage: FOUR COURSES OF SALVAGE CHEMOTHERAPY WITH R-DHAC PROTOCOL
     Route: 065
     Dates: end: 201610
  12. ETOPOPHOS [Suspect]
     Active Substance: ETOPOSIDE PHOSPHATE
     Indication: BONE MARROW CONDITIONING REGIMEN
     Dosage: LYOPHILISATE FOR PARENTERAL USE, INDUCTION CHEMOTHERAPY WITH BEAC REGIMEN
     Route: 042
     Dates: start: 20161101, end: 20161101
  13. CYTARABINE KABI [Suspect]
     Active Substance: CYTARABINE
     Indication: BONE MARROW CONDITIONING REGIMEN
     Dosage: INDUCTION CHEMOTHERAPY WITH A BEAC REGIMEN, (EQUIVALENT TO 360 MG) TWICE DAILY FROM DAYS-6 TO DAY-3
     Route: 041
     Dates: start: 20161101, end: 20161104
  14. ZOPHREN [Suspect]
     Active Substance: ONDANSETRON
     Indication: PRODUCT USED FOR UNKNOWN INDICATION
     Route: 042
     Dates: start: 20161031, end: 20161104
  15. PARACETAMOL [Suspect]
     Active Substance: ACETAMINOPHEN
     Route: 065
     Dates: start: 20161104, end: 20161104
  16. EMEND [Suspect]
     Active Substance: APREPITANT
     Indication: PRODUCT USED FOR UNKNOWN INDICATION
     Route: 065
     Dates: start: 20161102, end: 20161103
  17. BICNU [Suspect]
     Active Substance: CARMUSTINE
     Indication: BONE MARROW CONDITIONING REGIMEN
     Dosage: INDUCTION CHEMOTHERAPY WITH A BEAC REGIMEN, (EQUIVALENT TO 540 MG SINGLE DOSE) ON DAY-7 (BEFORE AUTO
     Route: 041
     Dates: start: 20161031, end: 20161031
  18. LASILIX [Suspect]
     Active Substance: FUROSEMIDE
     Indication: PRODUCT USED FOR UNKNOWN INDICATION
     Route: 065
     Dates: start: 20161101, end: 20161101
  19. VINCRISTINE [Suspect]
     Active Substance: VINCRISTINE
     Indication: HIGH GRADE B-CELL LYMPHOMA BURKITT-LIKE LYMPHOMA RECURRENT
     Dosage: SIX COURSES OF CHEMOTHERAPY
     Route: 065
  20. PREDNISONE. [Suspect]
     Active Substance: PREDNISONE
     Indication: HIGH GRADE B-CELL LYMPHOMA BURKITT-LIKE LYMPHOMA RECURRENT
     Dosage: SIX COURSES OF CHEMOTHERAPY
     Route: 065
  21. INEXIUM [Suspect]
     Active Substance: ESOMEPRAZOLE
     Indication: PRODUCT USED FOR UNKNOWN INDICATION
     Route: 065
     Dates: start: 20161030, end: 20161104
  22. LASILIX [Suspect]
     Active Substance: FUROSEMIDE
     Route: 065
     Dates: start: 20161104, end: 20161104
  23. ENDOXAN 1000 MG, POUDRE POUR SOLUTION INJECTABLE [Suspect]
     Active Substance: CYCLOPHOSPHAMIDE
     Indication: HIGH GRADE B-CELL LYMPHOMA BURKITT-LIKE LYMPHOMA RECURRENT
     Dosage: 6 COURSES OF RCHOP CHEMOTHERAPY
     Route: 065
  24. ENDOXAN 1000 MG, POUDRE POUR SOLUTION INJECTABLE [Suspect]
     Active Substance: CYCLOPHOSPHAMIDE
     Indication: BONE MARROW CONDITIONING REGIMEN
     Dosage: INDUCTION CHEMOTHERAPY WITH A BEAC REGIMEN, (EQUIVALENT TO 2700 MG) AT DAY-6 TO DAY-3
     Route: 041
     Dates: start: 20161101, end: 20161104
  25. DEXAMETHASONE. [Suspect]
     Active Substance: DEXAMETHASONE
     Indication: HIGH GRADE B-CELL LYMPHOMA BURKITT-LIKE LYMPHOMA RECURRENT
     Dosage: FOUR COURSES OF SALVAGE CHEMOTHERAPY WITH R-DHAC PROTOCOL
     Route: 065
     Dates: end: 201610
  26. ZELITREX [Suspect]
     Active Substance: VALACYCLOVIR HYDROCHLORIDE
     Indication: PRODUCT USED FOR UNKNOWN INDICATION
     Route: 065
     Dates: start: 20161030, end: 20161104
  27. CHLORURE DE SODIUM 0.9% VIAFLO, SOLUTION POUR PERFUSION [Suspect]
     Active Substance: SODIUM CHLORIDE
     Indication: PRODUCT USED FOR UNKNOWN INDICATION
     Route: 065
     Dates: start: 20161101, end: 20161104
  28. METHOTREXATE. [Suspect]
     Active Substance: METHOTREXATE
     Indication: HIGH GRADE B-CELL LYMPHOMA BURKITT-LIKE LYMPHOMA RECURRENT
     Dosage: 4 LUMBAR PUNCTURES
     Route: 065
  29. METHOTREXATE. [Suspect]
     Active Substance: METHOTREXATE
     Dosage: SIX COURSES OF CHEMOTHERAPY, WITH A SPINAL TAP
     Route: 065
  30. ETOPOSIDE MYLAN [Suspect]
     Active Substance: ETOPOSIDE
     Indication: BONE MARROW CONDITIONING REGIMEN
     Dosage: NDUCTION CHEMOTHERAPY ACCORDING TO BEAC PROTOCOL, (EQUIVALENT TO 180 MG) TWICE DAILY FROM DAY-6 TO D
     Route: 041
     Dates: start: 20161102, end: 20161104
  31. PARACETAMOL [Suspect]
     Active Substance: ACETAMINOPHEN
     Indication: PRODUCT USED FOR UNKNOWN INDICATION
     Route: 065
     Dates: start: 20161031, end: 20161101

REACTIONS (13)
  - Atrial fibrillation [Unknown]
  - Escherichia sepsis [Unknown]
  - Pyrexia [Unknown]
  - Fluid overload [Unknown]
  - Pulmonary toxicity [Fatal]
  - Mucosal haemorrhage [Unknown]
  - Multiple organ dysfunction syndrome [Fatal]
  - Hyperkalaemia [Unknown]
  - Abdominal tenderness [Unknown]
  - Intestinal ischaemia [Unknown]
  - Abdominal pain upper [Unknown]
  - Cardiotoxicity [Fatal]
  - High grade B-cell lymphoma Burkitt-like lymphoma recurrent [Unknown]

NARRATIVE: CASE EVENT DATE: 201607
